FAERS Safety Report 10726585 (Version 1)
Quarter: 2015Q1

REPORT INFORMATION
  Report Type: Spontaneous
  Country: US (occurrence: None)
  Receive Date: 20150120
  Receipt Date: 20150120
  Transmission Date: 20150721
  Serious: Yes (Hospitalization)
  Sender: FDA-Public Use
  Company Number: None

PATIENT
  Age: 75 Year
  Sex: Male
  Weight: 73.8 kg

DRUGS (10)
  1. LISINOPRIL. [Concomitant]
     Active Substance: LISINOPRIL
  2. MYRBETRIQ [Concomitant]
     Active Substance: MIRABEGRON
  3. SORAFENIB [Suspect]
     Active Substance: SORAFENIB
  4. FLUPHENAZINE [Concomitant]
     Active Substance: FLUPHENAZINE
  5. LEVOTHYROXINE [Concomitant]
     Active Substance: LEVOTHYROXINE
  6. ZOLPIDEM [Concomitant]
     Active Substance: ZOLPIDEM\ZOLPIDEM TARTRATE
  7. ATORVASTATIN [Concomitant]
     Active Substance: ATORVASTATIN
  8. HYDROXYCHLOROQUINE [Concomitant]
     Active Substance: HYDROXYCHLOROQUINE
  9. MIRTAZAPINE. [Concomitant]
     Active Substance: MIRTAZAPINE
  10. SORAFENIB [Concomitant]
     Active Substance: SORAFENIB

REACTIONS (2)
  - Haematochezia [None]
  - Blood urine present [None]

NARRATIVE: CASE EVENT DATE: 20150117
